FAERS Safety Report 13515972 (Version 1)
Quarter: 2017Q2

REPORT INFORMATION
  Report Type: Spontaneous
  Country: US (occurrence: US)
  Receive Date: 20170505
  Receipt Date: 20170505
  Transmission Date: 20170830
  Serious: No
  Sender: FDA-Public Use
  Company Number: ALCN2017US003125

PATIENT
  Sex: Male

DRUGS (1)
  1. NAPHCON A [Suspect]
     Active Substance: NAPHAZOLINE HYDROCHLORIDE\PHENIRAMINE MALEATE
     Indication: EYE PRURITUS
     Dosage: UNK
     Route: 047
     Dates: start: 20170504

REACTIONS (2)
  - Dizziness [Unknown]
  - Eye irritation [Unknown]

NARRATIVE: CASE EVENT DATE: 20170504
